FAERS Safety Report 14708217 (Version 12)
Quarter: 2019Q3

REPORT INFORMATION
  Report Type: Report from Study
  Country: CZ (occurrence: CZ)
  Receive Date: 20180403
  Receipt Date: 20190927
  Transmission Date: 20191004
  Serious: Yes (Hospitalization, Other)
  Sender: FDA-Public Use
  Company Number: PHHY2018CZ027779

PATIENT
  Age: 5 Year
  Sex: Female
  Weight: 39 kg

DRUGS (11)
  1. DABRAFENIB [Suspect]
     Active Substance: DABRAFENIB
     Indication: MALIGNANT MELANOMA
     Dosage: UNK, UNK
     Route: 065
     Dates: start: 20171212, end: 20180215
  2. VIGANTOL [Concomitant]
     Indication: PRODUCT USED FOR UNKNOWN INDICATION
     Dosage: 4 DRP, QD (4 DROPS IN THE MORNING)
     Route: 065
  3. TRAMETINIB [Suspect]
     Active Substance: TRAMETINIB
     Indication: MALIGNANT MELANOMA
     Dosage: 0.7 MG, UNK
     Route: 048
     Dates: start: 20171212, end: 20180215
  4. TRAMETINIB [Suspect]
     Active Substance: TRAMETINIB
     Dosage: UNK
     Route: 065
     Dates: start: 20180411, end: 20180710
  5. DABRAFENIB [Suspect]
     Active Substance: DABRAFENIB
     Dosage: UNK
     Route: 065
     Dates: start: 20180411, end: 20180710
  6. SUMETROLIM [Concomitant]
     Active Substance: SULFAMETHOXAZOLE\TRIMETHOPRIM
     Indication: PRODUCT USED FOR UNKNOWN INDICATION
     Dosage: 480 MG, (2X1 AND ? TBL EVERY MONDAY, TUESDAY, WED)
     Route: 065
  7. DABRAFENIB [Suspect]
     Active Substance: DABRAFENIB
     Dosage: UNK
     Route: 065
     Dates: start: 20180221, end: 20180319
  8. EUTHYROX [Concomitant]
     Active Substance: LEVOTHYROXINE SODIUM
     Indication: PRODUCT USED FOR UNKNOWN INDICATION
     Dosage: 50 UG, QD
     Route: 065
  9. TRAMETINIB [Suspect]
     Active Substance: TRAMETINIB
     Indication: ASTROCYTOMA MALIGNANT
     Dosage: 1.17 MG (0.025 MG/KG), QD (SOLUTION)
     Route: 048
     Dates: start: 20180221, end: 20180319
  10. HYDROCORTISON [Concomitant]
     Active Substance: HYDROCORTISONE
     Indication: FEBRILE INFECTION
     Dosage: UNK
     Route: 042
  11. ASCORUTIN [Concomitant]
     Active Substance: ASCORBIC ACID\RUTIN
     Indication: PRODUCT USED FOR UNKNOWN INDICATION
     Dosage: 2X1 TABLET
     Route: 065

REACTIONS (29)
  - Laryngitis [Recovered/Resolved]
  - Ingrowing nail [Recovered/Resolved]
  - Nail bed inflammation [Unknown]
  - Dermatitis [Unknown]
  - Hair colour changes [Unknown]
  - Ingrowing nail [Recovered/Resolved]
  - Nail bed inflammation [Recovered/Resolved]
  - C-reactive protein increased [Unknown]
  - Tonsillitis [Recovered/Resolved]
  - Tonsillitis [Recovered/Resolved]
  - Pneumonia viral [Recovered/Resolved]
  - Aphthous ulcer [Recovered/Resolved]
  - Hyperpyrexia [Recovered/Resolved]
  - Aspartate aminotransferase increased [Unknown]
  - Obesity [Unknown]
  - Corona virus infection [Recovered/Resolved]
  - Dyspnoea [Recovered/Resolved]
  - Dental caries [Recovered/Resolved]
  - Concomitant disease aggravated [Unknown]
  - Staphylococcal infection [Unknown]
  - Urinary tract infection [Recovered/Resolved]
  - Paronychia [Unknown]
  - Upper respiratory tract infection [Recovered/Resolved]
  - Lower respiratory tract infection [Recovered/Resolved]
  - C-reactive protein increased [Recovered/Resolved]
  - Hypothyroidism [Unknown]
  - Anaemia [Unknown]
  - Alanine aminotransferase increased [Unknown]
  - Cough [Not Recovered/Not Resolved]

NARRATIVE: CASE EVENT DATE: 20180130
